FAERS Safety Report 9347630 (Version 1)
Quarter: 2013Q2

REPORT INFORMATION
  Report Type: Spontaneous
  Country: US (occurrence: US)
  Receive Date: 20130614
  Receipt Date: 20130614
  Transmission Date: 20140414
  Serious: No
  Sender: FDA-Public Use
  Company Number: US-BIOGENIDEC-2013BI053214

PATIENT
  Sex: Female

DRUGS (2)
  1. TYSABRI [Suspect]
     Indication: MULTIPLE SCLEROSIS
     Route: 042
     Dates: start: 20120806
  2. AMPYRA [Concomitant]
     Indication: GAIT DISTURBANCE
     Dates: start: 20110118

REACTIONS (2)
  - Mobility decreased [Recovered/Resolved]
  - Feeling abnormal [Recovered/Resolved]
